FAERS Safety Report 7414396-X (Version None)
Quarter: 2011Q2

REPORT INFORMATION
  Report Type: 
  Country: None (occurrence: None)
  Receive Date: 20110414
  Receipt Date: 20110405
  Transmission Date: 20111010
  Serious: Yes (Other)
  Sender: FDA-Public Use
  Company Number: DE-AMGEN-DEUSP2011019061

PATIENT
  Sex: Female

DRUGS (3)
  1. LANTAREL [Concomitant]
     Dosage: 1 DF, WEEKLY
  2. NALOXONE HCL W/OXYCODONE HCL [Concomitant]
     Dosage: UNK
  3. ENBREL [Suspect]
     Indication: PSORIATIC ARTHROPATHY
     Dosage: 50 MG, UNK
     Dates: start: 20110301

REACTIONS (7)
  - FATIGUE [None]
  - PRURITUS [None]
  - EYE DISORDER [None]
  - PAIN [None]
  - RASH [None]
  - FEELING ABNORMAL [None]
  - TACHYCARDIA [None]
